FAERS Safety Report 11128026 (Version 3)
Quarter: 2016Q2

REPORT INFORMATION
  Report Type: Spontaneous
  Country: ES (occurrence: ES)
  Receive Date: 20150521
  Receipt Date: 20160530
  Transmission Date: 20160815
  Serious: Yes (Other)
  Sender: FDA-Public Use
  Company Number: ES-JNJFOC-20150509832

PATIENT
  Age: 69 Year
  Sex: Female
  Weight: 61.4 kg

DRUGS (4)
  1. RIBAVIRIN. [Suspect]
     Active Substance: RIBAVIRIN
     Indication: HEPATITIS C
     Dates: end: 20150531
  2. OLYSIO [Suspect]
     Active Substance: SIMEPREVIR
     Indication: HEPATITIS C
     Route: 048
     Dates: start: 20150309, end: 20150531
  3. RIBAVIRIN. [Suspect]
     Active Substance: RIBAVIRIN
     Indication: HEPATITIS C
     Dates: start: 20150309
  4. SOFOSBUVIR [Suspect]
     Active Substance: SOFOSBUVIR
     Indication: HEPATITIS C
     Route: 065
     Dates: start: 20150309, end: 20150531

REACTIONS (7)
  - Toxic skin eruption [Not Recovered/Not Resolved]
  - Cheilitis [Not Recovered/Not Resolved]
  - Mouth ulceration [Unknown]
  - Skin exfoliation [Not Recovered/Not Resolved]
  - Lip oedema [Not Recovered/Not Resolved]
  - Photosensitivity reaction [Unknown]
  - Tongue injury [Not Recovered/Not Resolved]

NARRATIVE: CASE EVENT DATE: 20150407
